FAERS Safety Report 24768102 (Version 1)
Quarter: 2024Q4

REPORT INFORMATION
  Report Type: Spontaneous
  Country: US (occurrence: US)
  Receive Date: 20241223
  Receipt Date: 20241223
  Transmission Date: 20250115
  Serious: No
  Sender: STI PHARMA
  Company Number: US-STI Pharma LLC-2167539

PATIENT
  Age: 63 Year
  Sex: Female

DRUGS (6)
  1. ETHAMBUTOL HYDROCHLORIDE [Suspect]
     Active Substance: ETHAMBUTOL HYDROCHLORIDE
  2. LEVALBUTEROL [Concomitant]
     Active Substance: LEVALBUTEROL
  3. AMIKACIN SULFATE [Concomitant]
     Active Substance: AMIKACIN SULFATE
  4. RIFAMPIN [Concomitant]
     Active Substance: RIFAMPIN
  5. AZITHROMYCIN [Concomitant]
     Active Substance: AZITHROMYCIN
  6. 7% sodium Chloride [Concomitant]

REACTIONS (1)
  - Adverse drug reaction [Unknown]
